FAERS Safety Report 8647050 (Version 2)
Quarter: 2012Q4

REPORT INFORMATION
  Report Type: 
  Country: FR (occurrence: FR)
  Receive Date: 20120703
  Receipt Date: 20120914
  Transmission Date: 20130627
  Serious: Yes (Life-Threatening, Hospitalization)
  Sender: FDA-Public Use
  Company Number: FR-SANOFI-AVENTIS-2012SA045758

PATIENT
  Age: 66 Year
  Sex: Male
  Weight: 62 kg

DRUGS (4)
  1. TAXOTERE [Suspect]
     Indication: PROSTATE CANCER METASTATIC
     Route: 042
     Dates: start: 20120405, end: 20120724
  2. CORTANCYL [Concomitant]
     Dosage: 40 mg, 3 days of cycle
     Route: 048
  3. ZOPHREN [Concomitant]
     Dosage: 8 mg, one day of the cycle
     Route: 042
  4. MOTILIUM [Concomitant]
     Route: 048

REACTIONS (2)
  - Subdural haematoma [Unknown]
  - Meningorrhagia [Unknown]
